FAERS Safety Report 18746795 (Version 1)
Quarter: 2021Q1

REPORT INFORMATION
  Report Type: Spontaneous
  Country: US (occurrence: US)
  Receive Date: 20210115
  Receipt Date: 20210115
  Transmission Date: 20210419
  Serious: Yes (Hospitalization)
  Sender: FDA-Public Use
  Company Number: US-TEVA-2019-US-1124209

PATIENT
  Age: 56 Year
  Sex: Male

DRUGS (3)
  1. ANCEF [Suspect]
     Active Substance: CEFAZOLIN SODIUM
     Indication: PROPHYLAXIS
     Route: 065
  2. ACITRETIN. [Suspect]
     Active Substance: ACITRETIN
     Indication: PSORIASIS
     Route: 065
  3. ENBREL [Suspect]
     Active Substance: ETANERCEPT
     Indication: PSORIASIS
     Route: 065

REACTIONS (6)
  - Acute myocardial infarction [Recovering/Resolving]
  - Retinal artery occlusion [Recovering/Resolving]
  - Thrombosis [Recovering/Resolving]
  - Acute kidney injury [Recovering/Resolving]
  - Ischaemic stroke [Recovering/Resolving]
  - Dermatitis exfoliative [Recovering/Resolving]
